FAERS Safety Report 10337606 (Version 1)
Quarter: 2014Q3

REPORT INFORMATION
  Report Type: Spontaneous
  Country: US (occurrence: US)
  Receive Date: 20140724
  Receipt Date: 20140724
  Transmission Date: 20150326
  Serious: Yes (Other)
  Sender: FDA-Public Use
  Company Number: US-RANBAXY-2014US-83627

PATIENT
  Sex: Male

DRUGS (1)
  1. PSEUDOEPHEDRINE [Suspect]
     Active Substance: PSEUDOEPHEDRINE
     Indication: SINUS DISORDER
     Dosage: UNK
     Route: 065

REACTIONS (3)
  - Abdominal discomfort [Recovering/Resolving]
  - Hiatus hernia [Unknown]
  - Intestinal obstruction [Unknown]
